FAERS Safety Report 6148538-3 (Version None)
Quarter: 2009Q2

REPORT INFORMATION
  Report Type: 
  Country: None (occurrence: None)
  Receive Date: 20090406
  Receipt Date: 20090406
  Transmission Date: 20091009
  Serious: Yes (Other)
  Sender: FDA-Public Use
  Company Number: None

PATIENT
  Age: 71 Year
  Sex: Female
  Weight: 56.6996 kg

DRUGS (2)
  1. RECLAST [Suspect]
     Indication: OSTEOPOROSIS
     Dosage: YEARLY INTRACAVERNOUS
     Route: 017
     Dates: start: 20090102, end: 20090130
  2. RECLAST [Suspect]
     Indication: OSTEOPOROSIS
     Dosage: YEARLY INTRACAVERNOUS
     Route: 017
     Dates: start: 20080702

REACTIONS (8)
  - ARTHRALGIA [None]
  - BONE PAIN [None]
  - CHILLS [None]
  - DRUG INTOLERANCE [None]
  - HEADACHE [None]
  - INFLUENZA LIKE ILLNESS [None]
  - SHOCK [None]
  - TREMOR [None]
